FAERS Safety Report 8072555-X (Version None)
Quarter: 2012Q1

REPORT INFORMATION
  Report Type: 
  Country: None (occurrence: None)
  Receive Date: 20120126
  Receipt Date: 20120124
  Transmission Date: 20120608
  Serious: Yes (Hospitalization)
  Sender: FDA-Public Use
  Company Number: IT-BAYER-2012-007667

PATIENT

DRUGS (4)
  1. KANRENOL [Concomitant]
     Dosage: 100 MG, DAILY
     Route: 048
     Dates: start: 20090320, end: 20100504
  2. LASIX [Concomitant]
     Dosage: 50 MG, DAILY
     Route: 048
     Dates: start: 20090320, end: 20100504
  3. NEXAVAR [Suspect]
     Indication: HEPATIC NEOPLASM MALIGNANT
     Dosage: 800 MG, DAILY
     Route: 048
     Dates: start: 20090425, end: 20100504
  4. LIMPIDEX [Concomitant]
     Dosage: 30 MG, DAILY
     Route: 048
     Dates: start: 20090320, end: 20100504

REACTIONS (2)
  - JAUNDICE [None]
  - BILIARY COLIC [None]
